FAERS Safety Report 15498667 (Version 1)
Quarter: 2018Q4

REPORT INFORMATION
  Report Type: Spontaneous
  Country: US (occurrence: US)
  Receive Date: 20181015
  Receipt Date: 20181015
  Transmission Date: 20190205
  Serious: Yes (Hospitalization, Other)
  Sender: FDA-Public Use
  Company Number: None

PATIENT
  Age: 88 Year
  Sex: Female
  Weight: 73.6 kg

DRUGS (13)
  1. PHENYTOIN ER [Suspect]
     Active Substance: PHENYTOIN SODIUM
     Indication: SEIZURE
     Route: 048
     Dates: start: 20180607
  2. ALENDRONATE 70MG [Concomitant]
     Active Substance: ALENDRONATE SODIUM
     Dates: start: 20171115
  3. LEVOTHYROXINE 50MCG [Concomitant]
     Active Substance: LEVOTHYROXINE
     Dates: start: 20140107
  4. GABAPENTIN 300MG [Concomitant]
     Active Substance: GABAPENTIN
     Dates: start: 20140304
  5. MELATONIN 3MG [Concomitant]
  6. ATORVASTATIN 40MG [Concomitant]
     Active Substance: ATORVASTATIN
     Dates: start: 20140731
  7. VERAPAMIL 360MG [Concomitant]
     Dates: start: 20130715
  8. SENNA 8.6MG [Concomitant]
  9. DABIGATRAN [Suspect]
     Active Substance: DABIGATRAN
     Indication: ATRIAL FIBRILLATION
     Route: 048
     Dates: start: 20120929, end: 20180820
  10. ACETAMINOPHEN 325MG [Concomitant]
  11. METOPROLOL TARTRATE 50MG [Concomitant]
     Active Substance: METOPROLOL TARTRATE
     Dates: start: 20130401
  12. OMEPRAZOLE 20MG [Concomitant]
     Active Substance: OMEPRAZOLE
  13. VALSARTAN 80MG [Concomitant]
     Active Substance: VALSARTAN
     Dates: start: 20131217

REACTIONS (4)
  - Treatment failure [None]
  - Peripheral artery thrombosis [None]
  - Generalised tonic-clonic seizure [None]
  - Drug interaction [None]

NARRATIVE: CASE EVENT DATE: 20180820
